FAERS Safety Report 5148354-5 (Version None)
Quarter: 2006Q4

REPORT INFORMATION
  Report Type: 
  Country: None (occurrence: None)
  Receive Date: 20061106
  Receipt Date: 20061024
  Transmission Date: 20070319
  Serious: Yes (Disabling)
  Sender: FDA-Public Use
  Company Number: 2006131447

PATIENT
  Sex: Female
  Weight: 76 kg

DRUGS (5)
  1. AROMASIN [Suspect]
     Indication: BREAST CANCER
     Dosage: 25 MG (25 MG, FREQUENCY: DAILY) ORAL
     Route: 048
  2. AROMASIN [Suspect]
     Indication: METASTASIS
     Dosage: 25 MG (25 MG, FREQUENCY: DAILY) ORAL
     Route: 048
  3. EZETROL (EZETIMIBE) [Concomitant]
  4. BONDROMAT ^BOEHRINGER MANNHEIM^ [Concomitant]
  5. MAGNESIUM [Concomitant]

REACTIONS (1)
  - KERATOCONJUNCTIVITIS SICCA [None]
